FAERS Safety Report 7166922-6 (Version None)
Quarter: 2010Q4

REPORT INFORMATION
  Report Type: 
  Country: None (occurrence: None)
  Receive Date: 20101202
  Receipt Date: 20101116
  Transmission Date: 20110411
  Serious: Yes (Other)
  Sender: FDA-Public Use
  Company Number: 2010P1002223

PATIENT
  Age: 41 Year
  Sex: Male
  Weight: 106.5953 kg

DRUGS (9)
  1. FENTANYL [Suspect]
     Dosage: ;TDER
     Route: 062
     Dates: start: 20080101, end: 20090101
  2. FENTANYL [Suspect]
     Dates: start: 20080101, end: 20080101
  3. FENTANYL [Suspect]
     Indication: INTERVERTEBRAL DISC PROTRUSION
     Dosage: 100 MCG/HR;Q48H;TIDER
     Route: 062
     Dates: start: 20101008
  4. OXYCONTIN [Suspect]
  5. DIAZEPAM [Concomitant]
  6. MENS MULTIVITAMIN [Concomitant]
  7. LOVAZA [Concomitant]
  8. RED YEAST RICE [Concomitant]
  9. ASCORBIC ACID [Concomitant]

REACTIONS (12)
  - CHILLS [None]
  - DEVICE MALFUNCTION [None]
  - DRUG INEFFECTIVE [None]
  - DYSGEUSIA [None]
  - HEADACHE [None]
  - HYPERSOMNIA [None]
  - INTRACRANIAL HYPOTENSION [None]
  - MALAISE [None]
  - PAIN [None]
  - PRODUCT ADHESION ISSUE [None]
  - PRODUCT FORMULATION ISSUE [None]
  - TREMOR [None]
